FAERS Safety Report 24045055 (Version 3)
Quarter: 2024Q3

REPORT INFORMATION
  Report Type: Spontaneous
  Country: GB (occurrence: GB)
  Receive Date: 20240703
  Receipt Date: 20240730
  Transmission Date: 20241017
  Serious: No
  Sender: JOHNSON AND JOHNSON
  Company Number: GB-JNJFOC-20240702953

PATIENT
  Age: 60 Year
  Sex: Male

DRUGS (1)
  1. SIMPONI [Suspect]
     Active Substance: GOLIMUMAB
     Indication: Rheumatic disorder
     Dosage: STRENGTH: 50.00 MG / 0.50 ML
     Route: 058

REACTIONS (4)
  - Device defective [Unknown]
  - Device issue [Unknown]
  - Off label use [Unknown]
  - Off label use [Unknown]
